FAERS Safety Report 8057262-1 (Version None)
Quarter: 2012Q1

REPORT INFORMATION
  Report Type: 
  Country: None (occurrence: None)
  Receive Date: 20120119
  Receipt Date: 20120113
  Transmission Date: 20120608
  Serious: Yes (Hospitalization)
  Sender: FDA-Public Use
  Company Number: PHHY2011FR109161

PATIENT
  Sex: Male

DRUGS (7)
  1. PLAVIX [Concomitant]
     Dosage: 1 DF, DAILY
  2. ZOCOR [Concomitant]
     Dosage: 20 MG, UNK
  3. CELECTOL [Concomitant]
     Dosage: 200 MG, DAILY
     Route: 048
  4. DIAMICRON [Concomitant]
     Dosage: 90 MG, DAILY
  5. TASIGNA [Suspect]
     Indication: CHRONIC MYELOID LEUKAEMIA
     Dosage: 800 MG, DAILY
     Dates: start: 20100910, end: 20100920
  6. TASIGNA [Suspect]
     Dosage: 400 MG
     Dates: start: 20100920, end: 20110902
  7. CORVASAL [Concomitant]
     Dosage: 2 DF, DAILY
     Route: 048

REACTIONS (8)
  - MUSCULAR WEAKNESS [None]
  - AREFLEXIA [None]
  - MYALGIA [None]
  - GENERAL PHYSICAL HEALTH DETERIORATION [None]
  - PARAPARESIS [None]
  - ATROPHY [None]
  - POLYNEUROPATHY [None]
  - FALL [None]
